FAERS Safety Report 7806331-7 (Version None)
Quarter: 2011Q4

REPORT INFORMATION
  Report Type: 
  Country: None (occurrence: None)
  Receive Date: 20111007
  Receipt Date: 20111007
  Transmission Date: 20120403
  Serious: Yes (Hospitalization)
  Sender: FDA-Public Use
  Company Number: None

PATIENT
  Age: 66 Year
  Sex: Male
  Weight: 60.3284 kg

DRUGS (1)
  1. ERLOTINIB HYDROCHLORIDE [Suspect]
     Dosage: 100MG DAILY PO
     Route: 048
     Dates: start: 20110524, end: 20110918

REACTIONS (4)
  - ASTHENIA [None]
  - DISORIENTATION [None]
  - METASTASES TO MENINGES [None]
  - METASTASES TO CENTRAL NERVOUS SYSTEM [None]
